FAERS Safety Report 7916083-8 (Version None)
Quarter: 2011Q4

REPORT INFORMATION
  Report Type: 
  Country: None (occurrence: None)
  Receive Date: 20111116
  Receipt Date: 20111114
  Transmission Date: 20120403
  Serious: Yes (Hospitalization)
  Sender: FDA-Public Use
  Company Number: PL-ROCHE-1003885

PATIENT
  Age: 53 Year
  Sex: Male
  Weight: 115 kg

DRUGS (1)
  1. MABTHERA [Suspect]
     Indication: CHRONIC LYMPHOCYTIC LEUKAEMIA
     Dosage: FREQUENCY: ONCE, LAST DOSE PRIOR TO SAE: 30AUG 2011
     Route: 042
     Dates: start: 20110705

REACTIONS (1)
  - CEREBRAL THROMBOSIS [None]
